FAERS Safety Report 8090827-X (Version None)
Quarter: 2012Q1

REPORT INFORMATION
  Report Type: 
  Country: None (occurrence: None)
  Receive Date: 20120131
  Receipt Date: 20120126
  Transmission Date: 20120608
  Serious: Yes (Other)
  Sender: FDA-Public Use
  Company Number: US-TEVA-319425USA

PATIENT
  Sex: Female

DRUGS (1)
  1. LAMIVUDINE/ZIDOVUDINE [Suspect]

REACTIONS (7)
  - MUSCULAR WEAKNESS [None]
  - ABSCESS [None]
  - MYALGIA [None]
  - ARTHRALGIA [None]
  - JOINT SWELLING [None]
  - FATIGUE [None]
  - LUPUS-LIKE SYNDROME [None]
